FAERS Safety Report 8567012-8 (Version None)
Quarter: 2012Q3

REPORT INFORMATION
  Report Type: 
  Country: None (occurrence: None)
  Receive Date: 20120803
  Receipt Date: 20111003
  Transmission Date: 20120928
  Serious: No
  Sender: FDA-Public Use
  Company Number: US-ABBOTT-11P-163-0860347-00

PATIENT
  Sex: Male
  Weight: 106.24 kg

DRUGS (4)
  1. CRESTOR [Concomitant]
     Indication: PRODUCT USED FOR UNKNOWN INDICATION
  2. ASPIRIN [Concomitant]
     Indication: PRODUCT USED FOR UNKNOWN INDICATION
  3. NORTRIPTYLINE HCL [Concomitant]
     Indication: MIGRAINE
  4. NIASPAN [Suspect]
     Indication: HIGH DENSITY LIPOPROTEIN DECREASED
     Dosage: AT BEDTIME
     Dates: start: 20111001

REACTIONS (2)
  - HEADACHE [None]
  - MIDDLE INSOMNIA [None]
